FAERS Safety Report 12503533 (Version 1)
Quarter: 2016Q2

REPORT INFORMATION
  Report Type: Spontaneous
  Country: US (occurrence: None)
  Receive Date: 20160627
  Receipt Date: 20160627
  Transmission Date: 20160815
  Serious: Yes (Other)
  Sender: FDA-Public Use
  Company Number: None

PATIENT
  Age: 42 Year
  Sex: Female
  Weight: 72.12 kg

DRUGS (4)
  1. ZECUITY [Suspect]
     Active Substance: SUMATRIPTAN SUCCINATE
     Indication: MIGRAINE
     Dosage: 1 PATCH AS NEEDED  APPLIED TO A SURFACE, USUALLY THE SKIN
     Route: 061
     Dates: start: 20160616, end: 20160616
  2. SUMATRIPTAN. [Concomitant]
     Active Substance: SUMATRIPTAN
  3. METROCHLOPRAMIDE [Concomitant]
  4. ADVIL [Concomitant]
     Active Substance: IBUPROFEN

REACTIONS (3)
  - Application site pruritus [None]
  - Application site bruise [None]
  - Application site rash [None]

NARRATIVE: CASE EVENT DATE: 20160616
